FAERS Safety Report 5008049-5 (Version None)
Quarter: 2006Q2

REPORT INFORMATION
  Report Type: 
  Country: None (occurrence: None)
  Receive Date: 20060404
  Receipt Date: 20050803
  Transmission Date: 20061013
  Serious: Yes (Other)
  Sender: FDA-Public Use
  Company Number: 2005081081

PATIENT
  Age: 16 Year
  Sex: Female

DRUGS (3)
  1. GEODON [Suspect]
     Indication: PSYCHOTIC DISORDER
     Dosage: 20 MG, ORAL
     Route: 048
     Dates: start: 20041009, end: 20041011
  2. IBUPROFEN [Concomitant]
  3. HYDROCORTISONE [Concomitant]

REACTIONS (6)
  - CHEST PAIN [None]
  - DYSPHAGIA [None]
  - EXCITABILITY [None]
  - EXTRAPYRAMIDAL DISORDER [None]
  - PRURITUS [None]
  - SINUS TACHYCARDIA [None]
